FAERS Safety Report 8858978 (Version 1)
Quarter: 2012Q4

REPORT INFORMATION
  Report Type: 
  Country: JP (occurrence: JP)
  Receive Date: 20121024
  Receipt Date: 20121024
  Transmission Date: 20130627
  Serious: Yes (Death)
  Sender: FDA-Public Use
  Company Number: JP-ASTELLAS-2012JP009895

PATIENT
  Age: 93 Year
  Sex: Male

DRUGS (4)
  1. FUNGUARD [Suspect]
     Indication: CANDIDIASIS
     Route: 065
  2. INH [Concomitant]
     Indication: PULMONARY TUBERCULOSIS
     Dosage: 300 mg, Unknown/D
     Route: 065
  3. RIFAMPICIN [Concomitant]
     Indication: PULMONARY TUBERCULOSIS
     Dosage: 450 mg, Unknown/D
     Route: 065
  4. VORICONAZOLE [Concomitant]
     Indication: ASPERGILLOSIS
     Route: 065

REACTIONS (2)
  - Drug ineffective [Unknown]
  - Candidiasis [Fatal]
